FAERS Safety Report 18505973 (Version 1)
Quarter: 2020Q4

REPORT INFORMATION
  Report Type: Spontaneous
  Country: US (occurrence: US)
  Receive Date: 20201116
  Receipt Date: 20201116
  Transmission Date: 20210114
  Serious: No
  Sender: FDA-Public Use
  Company Number: US-TEVA-2020-US-1849131

PATIENT
  Age: 83 Year
  Sex: Male

DRUGS (2)
  1. PRAVASTATIN SODIUM TEVA [Suspect]
     Active Substance: PRAVASTATIN SODIUM
     Indication: BLOOD CHOLESTEROL INCREASED
     Dosage: 20 MILLIGRAM DAILY;
     Route: 065
  2. PRAVASTATIN SODIUM TEVA [Suspect]
     Active Substance: PRAVASTATIN SODIUM
     Dosage: DOSE: SPLITTING THE 20 MG TABLETS
     Route: 065

REACTIONS (4)
  - Wrong technique in product usage process [Unknown]
  - Urticaria [Not Recovered/Not Resolved]
  - Capillary fragility [Unknown]
  - Rash [Recovered/Resolved]
